FAERS Safety Report 17120127 (Version 1)
Quarter: 2019Q4

REPORT INFORMATION
  Report Type: Spontaneous
  Country: DE (occurrence: DE)
  Receive Date: 20191206
  Receipt Date: 20191206
  Transmission Date: 20200122
  Serious: Yes (Other)
  Sender: FDA-Public Use
  Company Number: NVSC2019DE053971

PATIENT
  Age: 79 Year
  Sex: Female
  Weight: 57 kg

DRUGS (21)
  1. DENOSUMAB [Concomitant]
     Active Substance: DENOSUMAB
     Indication: PROPHYLAXIS
     Dosage: 120 MG, QMO
     Route: 065
     Dates: start: 20190829
  2. ACICLOVIR [Concomitant]
     Active Substance: ACYCLOVIR
     Indication: PROPHYLAXIS
     Dosage: 800 MG, QD (400 MILLIGRAM, BID)
     Route: 065
     Dates: start: 20190822
  3. MCP [Concomitant]
     Active Substance: METOCLOPRAMIDE HYDROCHLORIDE
     Indication: PROPHYLAXIS
     Dosage: 10 MG, PRN
     Route: 065
     Dates: start: 20190822
  4. EPOETIN [Concomitant]
     Active Substance: ERYTHROPOIETIN
     Indication: IRON DEFICIENCY ANAEMIA
     Dosage: 3000 IU, QW
     Route: 065
     Dates: start: 20190822
  5. VITAMIN B12 [Concomitant]
     Active Substance: CYANOCOBALAMIN
     Indication: ANAEMIA VITAMIN B12 DEFICIENCY
     Dosage: 1000 IU, Q3MO
     Route: 065
     Dates: start: 20160223
  6. PREGABALIN. [Concomitant]
     Active Substance: PREGABALIN
     Indication: NEUROPATHY PERIPHERAL
     Dosage: 100 MG, QD (50 MILLIGRAM, BID)
     Route: 065
     Dates: start: 20160513
  7. BUPRENORPHINE HYDROCHLORIDE. [Concomitant]
     Active Substance: BUPRENORPHINE HYDROCHLORIDE
     Indication: LUMBAR SPINAL STENOSIS
     Dosage: 70 UG/HR, QD
     Route: 065
     Dates: start: 20160502
  8. KYPROLIS [Suspect]
     Active Substance: CARFILZOMIB
     Dosage: 56 MG/M2
     Route: 042
     Dates: start: 20190905, end: 20190913
  9. KALINOR [Concomitant]
     Indication: PROPHYLAXIS
     Dosage: 3 IU, QW
     Route: 065
     Dates: start: 20160714
  10. PANTOZOL [Concomitant]
     Active Substance: PANTOPRAZOLE SODIUM
     Indication: PROPHYLAXIS
     Dosage: 120 MG, QD (40 MILLIGRAM, TID)
     Route: 065
     Dates: start: 20161214
  11. INTRATECT [Concomitant]
     Active Substance: HUMAN IMMUNOGLOBULIN G
     Indication: PROPHYLAXIS
     Dosage: 15 G, QMO
     Route: 065
  12. OXCARBAZEPIN [Concomitant]
     Active Substance: OXCARBAZEPINE
     Indication: NEUROPATHY PERIPHERAL
     Dosage: 450 MG, QD (150 MILLIGRAM, TID)
     Route: 065
     Dates: start: 20161108
  13. NOVAMINSULFON [Concomitant]
     Active Substance: METAMIZOLE
     Indication: LUMBAR SPINAL STENOSIS
     Dosage: 1000 MG, QD (500 MILLIGRAM, BID)
     Route: 065
     Dates: start: 20160502
  14. DEXAMETHASONE. [Suspect]
     Active Substance: DEXAMETHASONE
     Indication: PLASMA CELL MYELOMA
     Dosage: 20 MG
     Route: 065
     Dates: start: 20190829, end: 20190913
  15. FUROSEMID [Concomitant]
     Active Substance: FUROSEMIDE
     Indication: CARDIAC FAILURE CHRONIC
     Dosage: 40 MG, QD
     Route: 065
     Dates: start: 20161214
  16. COTRIM FORTE [Concomitant]
     Active Substance: SULFAMETHOXAZOLE\TRIMETHOPRIM
     Indication: PROPHYLAXIS
     Dosage: 2880 MG, QW (960 MILLIGRAM, 3 TIMES/WK)
     Route: 065
     Dates: start: 20190822
  17. DIGIMERCK [Concomitant]
     Active Substance: DIGITOXIN
     Indication: CARDIAC FAILURE CHRONIC
     Dosage: 0.07 MG, QD
     Route: 065
     Dates: start: 20160223
  18. KYPROLIS [Suspect]
     Active Substance: CARFILZOMIB
     Indication: PLASMA CELL MYELOMA
     Dosage: 20 MG/M2
     Route: 042
     Dates: start: 20190829, end: 20190830
  19. MARCUMAR [Concomitant]
     Active Substance: PHENPROCOUMON
     Indication: ATRIAL FIBRILLATION
     Dosage: 1 OT, QD
     Route: 065
     Dates: start: 20170208
  20. EUTHYROX [Concomitant]
     Active Substance: LEVOTHYROXINE SODIUM
     Indication: HYPOTHYROIDISM
     Dosage: 75 UG, QD
     Route: 065
     Dates: start: 20160223
  21. DEKRISTOL [Concomitant]
     Active Substance: CHOLECALCIFEROL
     Indication: PROPHYLAXIS
     Dosage: 2000 IU
     Route: 065
     Dates: start: 20170503

REACTIONS (1)
  - Polyneuropathy [Not Recovered/Not Resolved]

NARRATIVE: CASE EVENT DATE: 20190905
